FAERS Safety Report 10694209 (Version 1)
Quarter: 2015Q1

REPORT INFORMATION
  Report Type: Spontaneous
  Country: US (occurrence: US)
  Receive Date: 20150106
  Receipt Date: 20150106
  Transmission Date: 20150721
  Serious: No
  Sender: FDA-Public Use
  Company Number: US-009507513-1412USA013829

PATIENT
  Age: 28 Year
  Sex: Female
  Weight: 53.97 kg

DRUGS (2)
  1. NUVARING [Suspect]
     Active Substance: ETHINYL ESTRADIOL\ETONOGESTREL
     Dosage: 1 RING 3 WEEKS IN 1 WEEK OUT
     Route: 067
     Dates: start: 201112, end: 20141229
  2. NUVARING [Suspect]
     Active Substance: ETHINYL ESTRADIOL\ETONOGESTREL
     Dosage: 1 RING 3 WEEKS IN 1 WEEK OUT
     Route: 067
     Dates: start: 20141230

REACTIONS (2)
  - Inappropriate schedule of drug administration [Unknown]
  - Device expulsion [Recovered/Resolved]

NARRATIVE: CASE EVENT DATE: 20141229
